FAERS Safety Report 22636262 (Version 1)
Quarter: 2023Q2

REPORT INFORMATION
  Report Type: Spontaneous
  Country: FR (occurrence: FR)
  Receive Date: 20230623
  Receipt Date: 20230623
  Transmission Date: 20230722
  Serious: Yes (Hospitalization, Other)
  Sender: FDA-Public Use
  Company Number: FR-AMNEAL PHARMACEUTICALS-2023-AMRX-02168

PATIENT
  Age: 63 Year
  Sex: Female

DRUGS (1)
  1. METHOTREXATE [Suspect]
     Active Substance: METHOTREXATE
     Indication: Polymyalgia rheumatica
     Dosage: WEEKLY LOW DOSE OF METHOTREXATE
     Route: 065

REACTIONS (3)
  - Acute kidney injury [Unknown]
  - Dysplasia [Unknown]
  - Pancytopenia [Unknown]
